FAERS Safety Report 4789139-9 (Version None)
Quarter: 2005Q4

REPORT INFORMATION
  Report Type: 
  Country: None (occurrence: None)
  Receive Date: 20051005
  Receipt Date: 20050908
  Transmission Date: 20060501
  Serious: Yes (Hospitalization)
  Sender: FDA-Public Use
  Company Number: JP-MERCK-0509USA01037

PATIENT
  Age: 70 Year
  Sex: Female

DRUGS (6)
  1. SINGULAIR [Suspect]
     Indication: ASTHMA
     Route: 048
     Dates: start: 20050705, end: 20050905
  2. FURSULTIAMINE [Concomitant]
     Route: 048
     Dates: start: 20050618
  3. MUCODYNE [Concomitant]
     Route: 048
     Dates: start: 20040730
  4. BROMHEXINE HYDROCHLORIDE [Concomitant]
     Route: 048
     Dates: start: 20041019
  5. MECOBALAMIN [Concomitant]
     Route: 048
  6. CODEINE PHOSPHATE [Concomitant]
     Route: 048

REACTIONS (3)
  - COLLAGEN DISORDER [None]
  - PNEUMONIA [None]
  - RHABDOMYOLYSIS [None]
